FAERS Safety Report 10205976 (Version 3)
Quarter: 2014Q3

REPORT INFORMATION
  Report Type: Spontaneous
  Country: US (occurrence: None)
  Receive Date: 20140527
  Receipt Date: 20140716
  Transmission Date: 20150326
  Serious: Yes (Hospitalization, Other)
  Sender: FDA-Public Use
  Company Number: UTC-045095

PATIENT
  Age: 39 Year
  Sex: Female
  Weight: 54.5 kg

DRUGS (4)
  1. ADCIRCA (TADALAFIL) UNKNOWN [Concomitant]
  2. REVATIO (SILDENAFIL CITRATE) [Concomitant]
  3. REMODULIN [Suspect]
     Active Substance: TREPROSTINIL
     Indication: PULMONARY ARTERIAL HYPERTENSION
     Dosage: 0.028 UG/KG, CONTINUING, IV DRIP
     Route: 041
     Dates: start: 20131105
  4. LETAIRIS [Suspect]
     Active Substance: AMBRISENTAN
     Indication: PULMONARY ARTERIAL HYPERTENSION
     Dates: start: 20100916

REACTIONS (12)
  - Injection site swelling [None]
  - Injection site pruritus [None]
  - Infusion site erythema [None]
  - Injection site vesicles [None]
  - Infusion site pain [None]
  - Infusion site pruritus [None]
  - Dermatitis contact [None]
  - Injection site erythema [None]
  - Injection site discharge [None]
  - Wheezing [None]
  - Haemoptysis [None]
  - Pulmonary hypertension [None]

NARRATIVE: CASE EVENT DATE: 20140212
